FAERS Safety Report 13332363 (Version 1)
Quarter: 2017Q1

REPORT INFORMATION
  Report Type: Spontaneous
  Country: US (occurrence: US)
  Receive Date: 20170314
  Receipt Date: 20170314
  Transmission Date: 20170428
  Serious: Yes (Hospitalization)
  Sender: FDA-Public Use
  Company Number: None

PATIENT
  Age: 63 Year
  Sex: Male
  Weight: 122 kg

DRUGS (1)
  1. FENTANYL. [Suspect]
     Active Substance: FENTANYL
     Indication: BACK PAIN
     Dosage: ?          OTHER FREQUENCY:Q 3 DAYS;?
     Route: 062

REACTIONS (4)
  - Drug dependence [None]
  - Agitation [None]
  - Mental status changes [None]
  - Lethargy [None]

NARRATIVE: CASE EVENT DATE: 20170314
